FAERS Safety Report 20738384 (Version 1)
Quarter: 2022Q2

REPORT INFORMATION
  Report Type: Spontaneous
  Country: RU (occurrence: None)
  Receive Date: 20220422
  Receipt Date: 20220422
  Transmission Date: 20220721
  Serious: Yes (Death, Other)
  Sender: FDA-Public Use
  Company Number: RU-ROCHE-3077565

PATIENT
  Age: 51 Year
  Sex: Female

DRUGS (4)
  1. BEVACIZUMAB [Suspect]
     Active Substance: BEVACIZUMAB
     Indication: Non-small cell lung cancer
     Route: 042
  2. ATEZOLIZUMAB [Suspect]
     Active Substance: ATEZOLIZUMAB
     Indication: Non-small cell lung cancer
     Route: 042
  3. CARBOPLATIN [Suspect]
     Active Substance: CARBOPLATIN
     Indication: Non-small cell lung cancer
     Route: 065
  4. PACLITAXEL [Suspect]
     Active Substance: PACLITAXEL
     Indication: Non-small cell lung cancer
     Route: 065

REACTIONS (9)
  - Disease progression [Unknown]
  - Thrombocytosis [Unknown]
  - Anaemia [Unknown]
  - Respiratory failure [Unknown]
  - Haemoptysis [Unknown]
  - Cough [Unknown]
  - Dyspnoea [Unknown]
  - Metastasis [Fatal]
  - Brain injury [Fatal]

NARRATIVE: CASE EVENT DATE: 20210501
